FAERS Safety Report 8135890-2 (Version None)
Quarter: 2012Q1

REPORT INFORMATION
  Report Type: 
  Country: None (occurrence: None)
  Receive Date: 20120214
  Receipt Date: 20120210
  Transmission Date: 20120608
  Serious: Yes (Other)
  Sender: FDA-Public Use
  Company Number: AT-GLAXOSMITHKLINE-B0781124A

PATIENT
  Age: 21 Year
  Sex: Male
  Weight: 90 kg

DRUGS (4)
  1. VALPROIC ACID [Concomitant]
     Indication: EPILEPSY
     Dosage: 1000MG PER DAY
     Route: 048
  2. BARBEXACLON [Concomitant]
     Indication: EPILEPSY
     Dosage: 100MG PER DAY
     Route: 048
     Dates: start: 20110201
  3. TROBALT [Suspect]
     Indication: FRONTAL LOBE EPILEPSY
     Dosage: 300MG PER DAY
     Route: 048
     Dates: start: 20111116, end: 20120119
  4. LEVETIRACETAM [Concomitant]
     Indication: EPILEPSY
     Dosage: 2000MG PER DAY
     Route: 048
     Dates: start: 20100601

REACTIONS (3)
  - SLOW SPEECH [None]
  - APHASIA [None]
  - DYSPHEMIA [None]
